FAERS Safety Report 8103498-0 (Version None)
Quarter: 2012Q1

REPORT INFORMATION
  Report Type: 
  Country: None (occurrence: None)
  Receive Date: 20120201
  Receipt Date: 20120126
  Transmission Date: 20120608
  Serious: No
  Sender: FDA-Public Use
  Company Number: PHEH2012US002358

PATIENT
  Sex: Female

DRUGS (8)
  1. TASIGNA [Suspect]
     Dosage: 150 MG, BID
     Route: 048
     Dates: start: 20120101
  2. ALLOPURINOL [Suspect]
     Indication: GOUT
  3. LOSARTAN POTASSIUM [Concomitant]
  4. AMLODIPINE [Concomitant]
     Dosage: 2.5 MG, UNK
  5. NEXIUM [Concomitant]
  6. ADVAIR DISKUS 100/50 [Concomitant]
  7. CRESTOR [Concomitant]
     Dosage: 10 MG, UNK
  8. SINGULAIR [Concomitant]

REACTIONS (8)
  - GOUT [None]
  - BLOOD MAGNESIUM DECREASED [None]
  - NAUSEA [None]
  - BLOOD POTASSIUM DECREASED [None]
  - DISEASE RECURRENCE [None]
  - CONSTIPATION [None]
  - BLOOD URIC ACID INCREASED [None]
  - ABDOMINAL PAIN UPPER [None]
